FAERS Safety Report 8996920 (Version 1)
Quarter: 2012Q4

REPORT INFORMATION
  Report Type: Spontaneous
  Country: CN (occurrence: None)
  Receive Date: 20121221
  Receipt Date: 20121221
  Transmission Date: 20130627
  Serious: Yes (Other)
  Sender: FDA-Public Use
  Company Number: 2012000276

PATIENT
  Age: 81 Year
  Sex: Male
  Weight: 65 kg

DRUGS (3)
  1. ACEON (PERINDOPRIL ERBUMINE) TABLET, 2MG [Suspect]
     Indication: HYPERTENSION
     Route: 048
     Dates: start: 20110915, end: 20110919
  2. CLOPIDOGREL (CLOPIDOGREL) [Concomitant]
  3. ATORVASTATIN CALCIUM (ATORVASTATIN CALCIUM) [Concomitant]

REACTIONS (2)
  - Convulsion [None]
  - Blood pressure inadequately controlled [None]
